FAERS Safety Report 13599849 (Version 1)
Quarter: 2020Q3

REPORT INFORMATION
  Report Type: Report from Study
  Country: GB (occurrence: GB)
  Receive Date: 20170601
  Receipt Date: 20170601
  Transmission Date: 20201105
  Serious: Yes (Hospitalization)
  Sender: FDA-Public Use
  Company Number: GB-ASTRAZENECA-2016SF05332

PATIENT
  Age: 9836 Day
  Sex: Female

DRUGS (5)
  1. SENNA [Concomitant]
     Active Substance: SENNA LEAF\SENNOSIDES\SENNOSIDES A AND B
     Dosage: 7 DAYS15.0MG AS REQUIRED
  2. MEDI4736 [Suspect]
     Active Substance: DURVALUMAB
     Indication: METASTATIC RENAL CELL CARCINOMA
     Route: 042
     Dates: start: 20160818
  3. CODEINE [Concomitant]
     Active Substance: CODEINE
     Dosage: 7 DAYS30.0MG AS REQUIRED
  4. PARACETAMOL [Concomitant]
     Active Substance: ACETAMINOPHEN
     Dosage: 7 DAYS1.0G AS REQUIRED
  5. SAVOLITINIB. [Suspect]
     Active Substance: SAVOLITINIB
     Indication: METASTATIC RENAL CELL CARCINOMA
     Route: 048
     Dates: start: 20160818

REACTIONS (1)
  - Pleural effusion [Recovering/Resolving]

NARRATIVE: CASE EVENT DATE: 20160930
